FAERS Safety Report 9464244 (Version 1)
Quarter: 2013Q3

REPORT INFORMATION
  Report Type: Spontaneous
  Country: FR (occurrence: FR)
  Receive Date: 20130819
  Receipt Date: 20130819
  Transmission Date: 20140515
  Serious: Yes (Other)
  Sender: FDA-Public Use
  Company Number: FR-JNJFOC-20130802892

PATIENT
  Age: 54 Year
  Sex: Female

DRUGS (2)
  1. NICORETTE SPRAY [Suspect]
     Indication: SMOKING CESSATION THERAPY
     Route: 002
     Dates: start: 20130803, end: 20130803
  2. LAMICTAL [Concomitant]
     Indication: EPILEPSY
     Route: 048

REACTIONS (2)
  - Epilepsy [Recovered/Resolved]
  - Feeling hot [Unknown]
